FAERS Safety Report 19613297 (Version 1)
Quarter: 2021Q3

REPORT INFORMATION
  Report Type: Spontaneous
  Country: US (occurrence: US)
  Receive Date: 20210726
  Receipt Date: 20210726
  Transmission Date: 20211014
  Serious: Yes (Other)
  Sender: FDA-Public Use
  Company Number: None

PATIENT
  Age: 64 Year
  Sex: Female
  Weight: 66.6 kg

DRUGS (14)
  1. COENZYME Q10 [Concomitant]
     Active Substance: DIETARY SUPPLEMENT\UBIDECARENONE
  2. GABAPENTIN. [Concomitant]
     Active Substance: GABAPENTIN
  3. VITAMIN D3 [Concomitant]
     Active Substance: CHOLECALCIFEROL
  4. ENTACAPONE. [Concomitant]
     Active Substance: ENTACAPONE
  5. CITALOPRAM [Concomitant]
     Active Substance: CITALOPRAM HYDROBROMIDE
  6. VITAMIN C [Concomitant]
     Active Substance: ASCORBIC ACID
  7. FLAXSEED [Concomitant]
     Active Substance: FLAX SEED
  8. VITAMIN B12 [Concomitant]
     Active Substance: CYANOCOBALAMIN
  9. JUICE + SUPPLEMENT [Concomitant]
  10. CARBIDOPA/LEVODOPA [Concomitant]
     Active Substance: CARBIDOPA\LEVODOPA
  11. QUETIAPINE. [Concomitant]
     Active Substance: QUETIAPINE
  12. CLONAZEPAM. [Concomitant]
     Active Substance: CLONAZEPAM
  13. KYNMOBI [Suspect]
     Active Substance: APOMORPHINE HYDROCHLORIDE
     Indication: PARKINSON^S DISEASE
     Dosage: ?          QUANTITY:1 SUBLINGUAL;OTHER FREQUENCY:UP TO 5X DAILY;?
     Route: 060
     Dates: start: 20210726, end: 20210726
  14. ZINC. [Concomitant]
     Active Substance: ZINC

REACTIONS (4)
  - Headache [None]
  - Blood pressure increased [None]
  - Sinus pain [None]
  - Sinus congestion [None]

NARRATIVE: CASE EVENT DATE: 20210726
